FAERS Safety Report 12716593 (Version 1)
Quarter: 2016Q3

REPORT INFORMATION
  Report Type: Spontaneous
  Country: US (occurrence: US)
  Receive Date: 20160906
  Receipt Date: 20160906
  Transmission Date: 20161109
  Serious: Yes (Other)
  Sender: FDA-Public Use
  Company Number: None

PATIENT
  Age: 93 Year
  Sex: Female
  Weight: 41.85 kg

DRUGS (1)
  1. NUPLAZID [Suspect]
     Active Substance: PIMAVANSERIN TARTRATE
     Indication: HALLUCINATION
     Route: 048
     Dates: start: 20160824, end: 20160902

REACTIONS (5)
  - Confusional state [None]
  - Hallucination [None]
  - Oedema peripheral [None]
  - Posture abnormal [None]
  - Eyelid ptosis [None]

NARRATIVE: CASE EVENT DATE: 20160902
